FAERS Safety Report 13837120 (Version 1)
Quarter: 2017Q3

REPORT INFORMATION
  Report Type: Spontaneous
  Country: US (occurrence: US)
  Receive Date: 20170804
  Receipt Date: 20170804
  Transmission Date: 20171127
  Serious: No
  Sender: FDA-Public Use
  Company Number: US-ROCHE-692272

PATIENT
  Sex: Female
  Weight: 64 kg

DRUGS (2)
  1. BONIVA [Suspect]
     Active Substance: IBANDRONATE SODIUM
     Indication: OSTEOPOROSIS
     Route: 048
     Dates: start: 20071220, end: 201005
  2. CALCIUM [Concomitant]
     Active Substance: CALCIUM
     Dosage: DRUG REPORTED AS: CALCIUM WITH VITAMIN D 600/200 TAKEN DAILY FOR YEARS
     Route: 048

REACTIONS (5)
  - Drug ineffective [Unknown]
  - Osteoporosis [Unknown]
  - Arthralgia [Unknown]
  - Bone pain [Unknown]
  - Body height decreased [Unknown]
